FAERS Safety Report 9854999 (Version 5)
Quarter: 2014Q2

REPORT INFORMATION
  Report Type: Spontaneous
  Country: US (occurrence: US)
  Receive Date: 20140130
  Receipt Date: 20140408
  Transmission Date: 20141212
  Serious: Yes (Disabling, Other)
  Sender: FDA-Public Use
  Company Number: US-SA-2014SA010433

PATIENT
  Age: 57 Year
  Sex: Male
  Weight: 75.3 kg

DRUGS (5)
  1. LANTUS [Suspect]
     Indication: TYPE 1 DIABETES MELLITUS
     Dosage: PRODUCT START DATE- 2003 OR 2004?FREQUENCY- AM AND PM DOSE:22 UNIT(S)
     Route: 051
  2. LANTUS SOLOSTAR [Suspect]
     Indication: TYPE 1 DIABETES MELLITUS
     Dosage: FREQUENCY-AM AND PM DOSE:22 UNIT(S)
     Route: 051
     Dates: start: 20140122
  3. INSULIN [Suspect]
     Route: 065
  4. SOLOSTAR [Concomitant]
     Dates: start: 20140122
  5. LISINOPRIL [Concomitant]

REACTIONS (10)
  - Disability [Unknown]
  - Coma [Recovered/Resolved]
  - West Nile viral infection [Recovered/Resolved]
  - Hypoglycaemia [Unknown]
  - Hypoaesthesia oral [Unknown]
  - Weight increased [Unknown]
  - Drug ineffective [Unknown]
  - Glycosylated haemoglobin increased [Unknown]
  - Blood glucose increased [Unknown]
  - Incorrect product storage [Unknown]
